FAERS Safety Report 21544661 (Version 1)
Quarter: 2022Q4

REPORT INFORMATION
  Report Type: Spontaneous
  Country: US (occurrence: None)
  Receive Date: 20221101
  Receipt Date: 20221101
  Transmission Date: 20230113
  Serious: Yes (Other)
  Sender: FDA-Public Use
  Company Number: None

PATIENT
  Age: 63 Year
  Sex: Female
  Weight: 62.55 kg

DRUGS (5)
  1. .DELTA.8-TETRAHYDROCANNABINOL\CANNABIDIOL\HERBALS [Suspect]
     Active Substance: .DELTA.8-TETRAHYDROCANNABINOL\CANNABIDIOL\HERBALS
     Indication: Insomnia
     Dosage: OTHER QUANTITY : 1 GUMMY;?FREQUENCY : AS NEEDED;?
     Route: 048
     Dates: start: 20221021, end: 20221021
  2. ARMOUR THYROID [Concomitant]
     Active Substance: THYROID, PORCINE
  3. IBUPROFEN [Concomitant]
     Active Substance: IBUPROFEN
  4. ASPIRIN [Concomitant]
     Active Substance: ASPIRIN
  5. CANNABIDIOL [Concomitant]
     Active Substance: CANNABIDIOL

REACTIONS (10)
  - Disorientation [None]
  - Anxiety [None]
  - Cold sweat [None]
  - Nausea [None]
  - Vision blurred [None]
  - Gait disturbance [None]
  - Blood pressure decreased [None]
  - Feeling abnormal [None]
  - Heart rate decreased [None]
  - Product substitution issue [None]

NARRATIVE: CASE EVENT DATE: 20221021
